FAERS Safety Report 6984631-0 (Version None)
Quarter: 2010Q3

REPORT INFORMATION
  Report Type: 
  Country: None (occurrence: None)
  Receive Date: 20100914
  Receipt Date: 20100914
  Transmission Date: 20110219
  Serious: No
  Sender: FDA-Public Use
  Company Number: None

PATIENT
  Age: 29 Year
  Sex: Male
  Weight: 94.3482 kg

DRUGS (1)
  1. ADDERALL 10 [Suspect]
     Dosage: 20MG PO
     Route: 048
     Dates: start: 20100202, end: 20100309

REACTIONS (1)
  - CHEST PAIN [None]
